FAERS Safety Report 18451897 (Version 1)
Quarter: 2020Q4

REPORT INFORMATION
  Report Type: Spontaneous
  Country: US (occurrence: US)
  Receive Date: 20201030
  Receipt Date: 20201030
  Transmission Date: 20210114
  Serious: Yes (Death)
  Sender: FDA-Public Use
  Company Number: None

PATIENT
  Age: 81 Year
  Sex: Female

DRUGS (1)
  1. TACROLIMUS. [Suspect]
     Active Substance: TACROLIMUS
     Indication: RENAL TRANSPLANT
     Dosage: OTHER FREQUENCY:1.5MG QAM 1MG QPM;?
     Route: 048

REACTIONS (2)
  - Organ failure [None]
  - Herpes zoster [None]

NARRATIVE: CASE EVENT DATE: 20201002
